FAERS Safety Report 13853174 (Version 2)
Quarter: 2017Q4

REPORT INFORMATION
  Report Type: Spontaneous
  Country: MX (occurrence: MX)
  Receive Date: 20170810
  Receipt Date: 20171116
  Transmission Date: 20180320
  Serious: Yes (Other)
  Sender: FDA-Public Use
  Company Number: MX-NOVOPROD-556912

PATIENT
  Age: 67 Year
  Sex: Female
  Weight: 51 kg

DRUGS (10)
  1. TRESIBA [Suspect]
     Active Substance: INSULIN DEGLUDEC
     Dosage: 20 IU, QD
     Route: 058
  2. CIRUELAX                           /02609901/ [Concomitant]
     Indication: CONSTIPATION
     Dosage: 2 TAB, QD, STARTED A FEW YEARS AGO
     Route: 048
  3. AZITHROMYCIN ANHYDROUS. [Concomitant]
     Active Substance: AZITHROMYCIN ANHYDROUS
     Indication: PROPHYLAXIS
     Dosage: 50 MG, QD
     Route: 048
  4. ESPABION [Concomitant]
     Indication: DYSPEPSIA
     Dosage: 250 MG, QD (ONE PILL BEFORE EACH MEAL)
     Route: 048
  5. TRESIBA [Suspect]
     Active Substance: INSULIN DEGLUDEC
     Dosage: 35 IU, QD
     Route: 058
     Dates: start: 20170702
  6. KETOROLACO [Concomitant]
     Indication: PAIN
     Dosage: 10 MG, BID
     Route: 048
     Dates: start: 20170704
  7. CEFTRIAXONE. [Concomitant]
     Active Substance: CEFTRIAXONE
     Indication: PROPHYLAXIS
     Dosage: 500 MG, QD
     Route: 030
     Dates: start: 20170704
  8. FOSFOCIL                           /00552502/ [Concomitant]
     Indication: PROPHYLAXIS
     Dosage: 500 MG
     Route: 065
     Dates: start: 20170704
  9. TRESIBA [Suspect]
     Active Substance: INSULIN DEGLUDEC
     Indication: DIABETES MELLITUS
     Dosage: 35 IU, QD
     Route: 058
     Dates: start: 201703
  10. GLUCERNA [Concomitant]
     Active Substance: AMINO ACIDS\DEXTROSE\ELECTROLYTES NOS\SOYBEAN OIL\VITAMINS
     Indication: PRODUCT USED FOR UNKNOWN INDICATION
     Dosage: 2 TABLESPOONS A DAY IN WATER
     Route: 065
     Dates: start: 20170801

REACTIONS (4)
  - Surgery [Recovered/Resolved]
  - Blood glucose increased [Recovered/Resolved]
  - Intentional underdose [Recovered/Resolved]
  - Postoperative wound complication [Not Recovered/Not Resolved]

NARRATIVE: CASE EVENT DATE: 20170630
